FAERS Safety Report 9596521 (Version 5)
Quarter: 2013Q4

REPORT INFORMATION
  Report Type: Report from Study
  Country: JP (occurrence: JP)
  Receive Date: 20131004
  Receipt Date: 20131212
  Transmission Date: 20140711
  Serious: Yes (Hospitalization)
  Sender: FDA-Public Use
  Company Number: JP-ABBVIE-13P-087-1136971-00

PATIENT
  Age: 78 Year
  Sex: Female
  Weight: 46 kg

DRUGS (35)
  1. HUMIRA [Suspect]
     Indication: RHEUMATOID ARTHRITIS
     Route: 058
     Dates: start: 20090917, end: 20120123
  2. HUMIRA [Suspect]
     Route: 058
     Dates: start: 20120331, end: 20120524
  3. HUMIRA [Suspect]
     Route: 058
     Dates: start: 20120608, end: 20120901
  4. SALAZOSULFAPYRIDINE [Concomitant]
     Indication: RHEUMATOID ARTHRITIS
     Dates: start: 20090917, end: 20120313
  5. ETODOLAC [Concomitant]
     Indication: RHEUMATOID ARTHRITIS
     Dates: end: 20120221
  6. OMEPRAZOLE [Concomitant]
     Indication: PRODUCT USED FOR UNKNOWN INDICATION
     Dates: end: 20120201
  7. ROSUVASTATIN CALCIUM [Concomitant]
     Indication: PRODUCT USED FOR UNKNOWN INDICATION
     Dates: end: 20120227
  8. ALENDRONATE SODIUM [Concomitant]
     Indication: PRODUCT USED FOR UNKNOWN INDICATION
     Dates: end: 20120201
  9. CALCIUM POLYSTYRENE SULFONATE [Concomitant]
     Indication: PRODUCT USED FOR UNKNOWN INDICATION
     Dates: end: 20111030
  10. CALCIUM POLYSTYRENE SULFONATE [Concomitant]
     Dates: start: 20111031, end: 20111211
  11. CALCIUM POLYSTYRENE SULFONATE [Concomitant]
     Dates: start: 20120213, end: 20120415
  12. CALCIUM POLYSTYRENE SULFONATE [Concomitant]
     Dates: start: 20120213, end: 20120415
  13. CALCIUM POLYSTYRENE SULFONATE [Concomitant]
     Dates: start: 20120416, end: 20120705
  14. CALCIUM POLYSTYRENE SULFONATE [Concomitant]
     Dates: start: 20120706, end: 20120802
  15. CALCIUM POLYSTYRENE SULFONATE [Concomitant]
     Dates: start: 20120803
  16. FEXOFENADINE HYDROCHLORIDE [Concomitant]
     Indication: PRODUCT USED FOR UNKNOWN INDICATION
     Dates: start: 20100128, end: 20120201
  17. FERROUS FUMARATE [Concomitant]
     Indication: PRODUCT USED FOR UNKNOWN INDICATION
     Dates: start: 20091015, end: 20120227
  18. REBAMIPIDE [Concomitant]
     Indication: PRODUCT USED FOR UNKNOWN INDICATION
     Route: 048
     Dates: start: 20100225, end: 20120201
  19. IRBESARTAN [Concomitant]
     Indication: PRODUCT USED FOR UNKNOWN INDICATION
     Dates: start: 20110111, end: 20111106
  20. IRBESARTAN [Concomitant]
     Dosage: 50 MG DAILY
     Dates: start: 20111107, end: 20120206
  21. IRBESARTAN [Concomitant]
     Dosage: 100 MG DAILY
     Dates: start: 20120207, end: 20120227
  22. EPOETIN BETA PEGOL [Concomitant]
     Indication: PRODUCT USED FOR UNKNOWN INDICATION
     Dates: start: 20120123, end: 20120123
  23. EPOETIN BETA PEGOL [Concomitant]
     Dates: start: 20120511
  24. EPOETIN ALFA [Concomitant]
     Indication: PRODUCT USED FOR UNKNOWN INDICATION
     Dates: start: 20111031, end: 20120123
  25. FUROSEMIDE [Concomitant]
     Indication: PRODUCT USED FOR UNKNOWN INDICATION
     Dates: start: 20120203, end: 20120205
  26. FUROSEMIDE [Concomitant]
     Indication: PLEURAL EFFUSION
     Dosage: 40 MG DAILY
     Dates: start: 20120206, end: 20120208
  27. FUROSEMIDE [Concomitant]
     Dosage: 20 MG DAILY
     Dates: start: 20120209, end: 20120215
  28. FUROSEMIDE [Concomitant]
     Dates: start: 20120601, end: 20120607
  29. AMLODIPINE BESILATE [Concomitant]
     Indication: PRODUCT USED FOR UNKNOWN INDICATION
     Dates: start: 20120210, end: 20120216
  30. AMLODIPINE BESILATE [Concomitant]
     Dosage: 10 MG DAILY
     Dates: start: 20120217, end: 20120229
  31. ESTAZOLAM [Concomitant]
     Indication: PRODUCT USED FOR UNKNOWN INDICATION
     Dates: start: 20120214, end: 20120219
  32. ESTAZOLAM [Concomitant]
     Dosage: 4 MG DAILY
     Dates: start: 20120220, end: 20120227
  33. AMLODIPINE BESILATE [Concomitant]
     Indication: PRODUCT USED FOR UNKNOWN INDICATION
     Dates: start: 20120210, end: 20120216
  34. AMLODIPINE BESILATE [Concomitant]
     Dates: start: 20120217, end: 20120229
  35. CELECOXIB [Concomitant]
     Indication: RHEUMATOID ARTHRITIS
     Dates: start: 20120413

REACTIONS (11)
  - Renal failure [Recovering/Resolving]
  - Sepsis [Recovered/Resolved]
  - Herpes zoster [Recovered/Resolved]
  - Musculoskeletal stiffness [Unknown]
  - Chills [Unknown]
  - Oropharyngeal pain [Unknown]
  - Pain [Unknown]
  - C-reactive protein increased [Unknown]
  - Arthritis [Unknown]
  - Insomnia [Recovered/Resolved]
  - Pleural effusion [Recovering/Resolving]
